FAERS Safety Report 5808066-9 (Version None)
Quarter: 2008Q3

REPORT INFORMATION
  Report Type: 
  Country: None (occurrence: None)
  Receive Date: 20080711
  Receipt Date: 20080630
  Transmission Date: 20090109
  Serious: Yes (Other)
  Sender: FDA-Public Use
  Company Number: US-PFIZER INC-2008054626

PATIENT
  Sex: Female
  Weight: 74.8 kg

DRUGS (1)
  1. CHANTIX [Suspect]
     Indication: SMOKING CESSATION THERAPY
     Dates: start: 20080619, end: 20080630

REACTIONS (4)
  - ABNORMAL BEHAVIOUR [None]
  - ANGER [None]
  - FEELING ABNORMAL [None]
  - HOMICIDAL IDEATION [None]
